FAERS Safety Report 17802285 (Version 2)
Quarter: 2020Q2

REPORT INFORMATION
  Report Type: Spontaneous
  Country: US (occurrence: US)
  Receive Date: 20200519
  Receipt Date: 20200529
  Transmission Date: 20200714
  Serious: No
  Sender: FDA-Public Use
  Company Number: US-PFIZER INC-2020198573

PATIENT
  Age: 46 Year
  Sex: Female
  Weight: 44.63 kg

DRUGS (6)
  1. LUPRON DEPOT [Concomitant]
     Active Substance: LEUPROLIDE ACETATE
     Dosage: UNK
  2. IBRANCE [Suspect]
     Active Substance: PALBOCICLIB
     Dosage: 75 MG, CYCLIC (DAILY FOR 21 DAYS, OFF 7 DAYS, RESTART)
     Route: 048
     Dates: start: 20200427
  3. COLACE [Concomitant]
     Active Substance: DOCUSATE SODIUM
     Dosage: UNK
  4. PROBIOTICS [Concomitant]
     Active Substance: PROBIOTICS NOS
  5. IBRANCE [Suspect]
     Active Substance: PALBOCICLIB
     Indication: BREAST CANCER FEMALE
     Dosage: 125 MG
     Dates: start: 2020
  6. MIRALAX [Concomitant]
     Active Substance: POLYETHYLENE GLYCOL 3350
     Dosage: UNK

REACTIONS (2)
  - Rash [Unknown]
  - Blood count abnormal [Unknown]

NARRATIVE: CASE EVENT DATE: 2020
